FAERS Safety Report 5029990-3 (Version None)
Quarter: 2006Q2

REPORT INFORMATION
  Report Type: 
  Country: None (occurrence: None)
  Receive Date: 20060614
  Receipt Date: 20060525
  Transmission Date: 20061013
  Serious: Yes (Hospitalization, Other)
  Sender: FDA-Public Use
  Company Number: HU200605002374

PATIENT
  Age: 55 Year
  Sex: Female

DRUGS (26)
  1. HUMULIN N [Suspect]
     Indication: DIABETES MELLITUS
     Dosage: 16 IU, DAILY (1/D), SUBCUTANEOUS
     Route: 058
  2. HUMULIN R [Suspect]
     Indication: DIABETES MELLITUS
  3. HUMULIN 70/30 [Suspect]
     Indication: DIABETES MELLITUS
     Dosage: 16-6 2IU, 3/D
     Dates: start: 20060223
  4. INSULATARD NPH HUMAN [Concomitant]
  5. MIXTARD HUMAN 70/30 [Concomitant]
  6. INSULIN ASPART (INSULIN ASPART) [Concomitant]
  7. METOPROLOL SUCCINATE [Concomitant]
  8. HYDROCHLOROTHIAZIDE [Concomitant]
  9. ALPRAZOLAM [Concomitant]
  10. VITAMIN D [Concomitant]
  11. PIRACETAM (PIRACETAM) [Concomitant]
  12. NITROGLYCERIN [Concomitant]
  13. ENALAPRIL MALEATE [Concomitant]
  14. NIFEDIPINE [Concomitant]
  15. LACTULOSE [Concomitant]
  16. ACARBOSE (ACARBOSE) [Concomitant]
  17. THEOPHYLLIN-SLOW RELEASE (THEOPHYLLINE) [Concomitant]
  18. DOMPERIDONE (DOMPERIDONE) [Concomitant]
  19. AMILORIDE (AMILORIDE) [Concomitant]
  20. LORATADINE [Concomitant]
  21. VINPOCETINE (VINPOCETINE) [Concomitant]
  22. DIPYRONE TAB [Concomitant]
  23. ASCORBIC ACID [Concomitant]
  24. TIMOLOL MALEATE [Concomitant]
  25. FLUOROMETHOLONE (FLUROMETHOLONE) [Concomitant]
  26. DEXTRAN 70 (DEXTRAN 70) [Concomitant]

REACTIONS (7)
  - BLOOD GLUCOSE INCREASED [None]
  - DRUG HYPERSENSITIVITY [None]
  - GLYCOSYLATED HAEMOGLOBIN INCREASED [None]
  - HEPATOMEGALY [None]
  - JOINT SWELLING [None]
  - OSTEOPOROSIS [None]
  - RASH [None]
